FAERS Safety Report 9331977 (Version 2)
Quarter: 2013Q2

REPORT INFORMATION
  Report Type: Spontaneous
  Country: BR (occurrence: BR)
  Receive Date: 20130605
  Receipt Date: 20130621
  Transmission Date: 20140414
  Serious: No
  Sender: FDA-Public Use
  Company Number: BR-ELI_LILLY_AND_COMPANY-BR201305007933

PATIENT
  Age: 41 Year
  Sex: Male
  Weight: 68 kg

DRUGS (4)
  1. CIALIS [Suspect]
     Indication: PREMATURE EJACULATION
     Dosage: 20 MG, OTHER
     Route: 048
     Dates: start: 201211
  2. CIALIS [Suspect]
     Dosage: 5 MG, OTHER
     Route: 048
     Dates: start: 201304
  3. VITAMIN C [Concomitant]
     Route: 065
  4. PARACETAMOL [Concomitant]
     Route: 065

REACTIONS (7)
  - Visual impairment [Recovering/Resolving]
  - Halo vision [Recovering/Resolving]
  - Eye irritation [Recovering/Resolving]
  - Lacrimal disorder [Recovering/Resolving]
  - Eye discharge [Recovering/Resolving]
  - Intentional drug misuse [Recovering/Resolving]
  - Off label use [Recovering/Resolving]
